FAERS Safety Report 19714512 (Version 3)
Quarter: 2021Q4

REPORT INFORMATION
  Report Type: Spontaneous
  Country: US (occurrence: None)
  Receive Date: 20210818
  Receipt Date: 20211227
  Transmission Date: 20220303
  Serious: Yes (Hospitalization)
  Sender: FDA-Public Use
  Company Number: US-ROCHE-2891037

PATIENT
  Age: 59 Year
  Sex: Male

DRUGS (14)
  1. XOLAIR [Suspect]
     Active Substance: OMALIZUMAB
     Indication: Idiopathic urticaria
     Dosage: STRENGTH AND DOSE:150 MG/ML
     Route: 058
     Dates: start: 20190627
  2. XOLAIR [Suspect]
     Active Substance: OMALIZUMAB
     Indication: Asthma
  3. DIPHENHYDRAMINE [Concomitant]
     Active Substance: DIPHENHYDRAMINE
     Route: 065
  4. IMATINIB MESYLATE [Concomitant]
     Active Substance: IMATINIB MESYLATE
     Route: 065
  5. SYMBICORT [Concomitant]
     Active Substance: BUDESONIDE\FORMOTEROL FUMARATE DIHYDRATE
  6. VENTOLIN HFA [Concomitant]
     Active Substance: ALBUTEROL SULFATE
  7. DIPHENHYDRAMINE [Concomitant]
     Active Substance: DIPHENHYDRAMINE
  8. DUPIXENT [Concomitant]
     Active Substance: DUPILUMAB
     Dosage: 300/2 ML
  9. ALLEGRA [Concomitant]
     Active Substance: FEXOFENADINE HYDROCHLORIDE
  10. AMLODIPINE [Concomitant]
     Active Substance: AMLODIPINE BESYLATE
  11. BENADRYL [Concomitant]
     Active Substance: DIPHENHYDRAMINE HYDROCHLORIDE
  12. DUPIXENT [Concomitant]
     Active Substance: DUPILUMAB
  13. FAMOTIDINE [Concomitant]
     Active Substance: FAMOTIDINE
  14. KETOPROFEN [Concomitant]
     Active Substance: KETOPROFEN

REACTIONS (2)
  - Anaphylactic reaction [Unknown]
  - Asthma [Unknown]

NARRATIVE: CASE EVENT DATE: 20210804
